FAERS Safety Report 7573517-9 (Version None)
Quarter: 2011Q2

REPORT INFORMATION
  Report Type: 
  Country: None (occurrence: None)
  Receive Date: 20110627
  Receipt Date: 20110623
  Transmission Date: 20111010
  Serious: Yes (Death)
  Sender: FDA-Public Use
  Company Number: PHHY2011JP55749

PATIENT
  Age: 68 Year
  Sex: Female

DRUGS (1)
  1. TEGRETOL [Suspect]
     Indication: EPILEPSY
     Route: 048

REACTIONS (4)
  - SPLENOMEGALY [None]
  - HEPATOMEGALY [None]
  - PULMONARY FIBROSIS [None]
  - TUBULOINTERSTITIAL NEPHRITIS [None]
